FAERS Safety Report 24288007 (Version 1)
Quarter: 2024Q3

REPORT INFORMATION
  Report Type: Spontaneous
  Country: US (occurrence: US)
  Receive Date: 20240905
  Receipt Date: 20240905
  Transmission Date: 20241016
  Serious: No
  Sender: TASMAN PHARMA
  Company Number: US-TASMAN PHARMA, INC.-2023TSM00176

PATIENT
  Sex: Male

DRUGS (1)
  1. CLOTRIMAZOLE [Suspect]
     Active Substance: CLOTRIMAZOLE
     Indication: Fungal foot infection
     Dosage: UNK

REACTIONS (1)
  - Drug ineffective [Unknown]
